FAERS Safety Report 5325567-0 (Version None)
Quarter: 2007Q2

REPORT INFORMATION
  Report Type: 
  Country: None (occurrence: None)
  Receive Date: 20070515
  Receipt Date: 20070510
  Transmission Date: 20071010
  Serious: Yes (Hospitalization)
  Sender: FDA-Public Use
  Company Number: JP-BOEHRINGER INGELHEIM PHARMACEUTICALS, INC.-2007-BP-05738YA

PATIENT
  Sex: Male

DRUGS (4)
  1. HARNAL (TAMSULOSIN) ORODISPERSABLE CR [Suspect]
     Route: 048
  2. VESICARE [Suspect]
     Indication: POLLAKIURIA
     Route: 048
     Dates: start: 20070405, end: 20070418
  3. VESICARE [Suspect]
     Indication: BENIGN PROSTATIC HYPERPLASIA
  4. HARNAL [Concomitant]
     Route: 065

REACTIONS (1)
  - HYPONATRAEMIA [None]
